FAERS Safety Report 5608151-0 (Version None)
Quarter: 2008Q1

REPORT INFORMATION
  Report Type: 
  Country: None (occurrence: None)
  Receive Date: 20080125
  Receipt Date: 20080108
  Transmission Date: 20080703
  Serious: Yes (Death)
  Sender: FDA-Public Use
  Company Number: 2008JP000087

PATIENT
  Age: 77 Year
  Sex: Male

DRUGS (1)
  1. FUNGUARD(MICAFUNGIN) INJECTION [Suspect]
     Dosage: 300 MG, IV DRIP
     Route: 041

REACTIONS (2)
  - CONDITION AGGRAVATED [None]
  - ENDOCARDITIS [None]
